FAERS Safety Report 21297097 (Version 1)
Quarter: 2022Q3

REPORT INFORMATION
  Report Type: Report from Study
  Country: MX (occurrence: MX)
  Receive Date: 20220906
  Receipt Date: 20220906
  Transmission Date: 20221027
  Serious: Yes (Other)
  Sender: FDA-Public Use
  Company Number: MX-NOVARTISPH-NVSC2022MX179110

PATIENT
  Sex: Female
  Weight: 65 kg

DRUGS (5)
  1. METFORMIN HYDROCHLORIDE\VILDAGLIPTIN [Suspect]
     Active Substance: METFORMIN HYDROCHLORIDE\VILDAGLIPTIN
     Indication: Diabetes mellitus
     Dosage: 1 DOSAGE FORM, TID, (EVERY 8 HOURS), (STOPPED 2 MONTHS AGO, UNKNOWN EXACT DATE)
     Route: 048
     Dates: start: 2016
  2. METFORMIN HYDROCHLORIDE\VILDAGLIPTIN [Suspect]
     Active Substance: METFORMIN HYDROCHLORIDE\VILDAGLIPTIN
     Dosage: 0.5 DOSAGE FORM, BID
     Route: 048
     Dates: start: 202205
  3. METFORMIN HYDROCHLORIDE\VILDAGLIPTIN [Suspect]
     Active Substance: METFORMIN HYDROCHLORIDE\VILDAGLIPTIN
     Dosage: 1.5 DOSAGE FORM, QD, (? IN THE MORNING AND 1 BY NIGHT), (STARTED 2 MONTHS AGO)
     Route: 048
  4. DAPAGLIFLOZIN [Concomitant]
     Active Substance: DAPAGLIFLOZIN
     Indication: Diabetes mellitus
     Dosage: 1 DOSAGE FORM, QD, (IN THE AFTERNOON), (STARTED 2 YEARS AGO)
     Route: 048
  5. AMARYL [Concomitant]
     Active Substance: GLIMEPIRIDE
     Indication: Diabetes mellitus
     Dosage: 1 DOSAGE FORM, QD, (EVERY 24 HOURS/IN THE MORNING), (STARTED 2 YEARS AGO)
     Route: 048

REACTIONS (6)
  - Glaucoma [Not Recovered/Not Resolved]
  - Hepatic steatosis [Recovering/Resolving]
  - Varicose vein [Recovering/Resolving]
  - Arthritis [Recovering/Resolving]
  - Wrong technique in product usage process [Unknown]
  - Off label use [Recovered/Resolved]

NARRATIVE: CASE EVENT DATE: 20160101
